FAERS Safety Report 4547291-4 (Version None)
Quarter: 2005Q1

REPORT INFORMATION
  Report Type: 
  Country: None (occurrence: None)
  Receive Date: 20050105
  Receipt Date: 20041220
  Transmission Date: 20050727
  Serious: Yes (Other)
  Sender: FDA-Public Use
  Company Number: PHEH2004US13006

PATIENT
  Age: 79 Year
  Sex: Female

DRUGS (1)
  1. VISUDYNE [Suspect]
     Indication: MACULAR DEGENERATION
     Dates: start: 20041104, end: 20041104

REACTIONS (3)
  - CHROMATOPSIA [None]
  - DISEASE PROGRESSION [None]
  - RETINAL DISORDER [None]
